FAERS Safety Report 5524784-4 (Version None)
Quarter: 2007Q4

REPORT INFORMATION
  Report Type: 
  Country: None (occurrence: None)
  Receive Date: 20071116
  Receipt Date: 20071108
  Transmission Date: 20080405
  Serious: Yes (Other)
  Sender: FDA-Public Use
  Company Number: MESA-2007-036

PATIENT
  Sex: Male

DRUGS (1)
  1. AMINOSALICYLIC ACID [Suspect]
     Dosage: 8 TABLETS QD PO
     Route: 048
     Dates: start: 20071001

REACTIONS (1)
  - NEPHROLITHIASIS [None]
